FAERS Safety Report 17315106 (Version 4)
Quarter: 2020Q3

REPORT INFORMATION
  Report Type: Report from Study
  Country: CO (occurrence: CO)
  Receive Date: 20200124
  Receipt Date: 20200727
  Transmission Date: 20201102
  Serious: Yes (Life-Threatening, Hospitalization, Other)
  Sender: FDA-Public Use
  Company Number: NVSC2019CO059241

PATIENT
  Age: 43 Year
  Sex: Female
  Weight: 60 kg

DRUGS (9)
  1. ACETAMINOFEN [Concomitant]
     Active Substance: ACETAMINOPHEN
     Indication: HEADACHE
     Dosage: 500 MG, QD
     Route: 048
  2. FERRIC CARBOXYMALTOSE [Concomitant]
     Active Substance: FERRIC CARBOXYMALTOSE
     Indication: ANAEMIA
     Dosage: UNK (1 APPLICATION)
     Route: 042
     Dates: start: 20200227
  3. REVOLADE [Suspect]
     Active Substance: ELTROMBOPAG
     Dosage: 75 MG, QD (3*25 MG)
     Route: 065
     Dates: start: 201911, end: 201912
  4. REVOLADE [Suspect]
     Active Substance: ELTROMBOPAG
     Dosage: 50 MG, QD (2 * 25 MG)
     Route: 065
  5. DILTIAZEM. [Concomitant]
     Active Substance: DILTIAZEM
     Indication: ARRHYTHMIA
     Dosage: UNK, PRN
     Route: 065
  6. DESLORATADINE. [Suspect]
     Active Substance: DESLORATADINE
     Indication: RHINITIS
     Dosage: 5 MG, QD
     Route: 048
  7. REVOLADE [Suspect]
     Active Substance: ELTROMBOPAG
     Indication: IMMUNE THROMBOCYTOPENIA
     Dosage: 50 MG, QD
     Route: 048
     Dates: start: 201911
  8. FUROSEMIDE. [Suspect]
     Active Substance: FUROSEMIDE
     Indication: FLUID RETENTION
     Dosage: 40 MG, QD
     Route: 048
  9. FERRIC CARBOXYMALTOSE [Concomitant]
     Active Substance: FERRIC CARBOXYMALTOSE
     Indication: BLOOD IRON DECREASED

REACTIONS (18)
  - Blood iron decreased [Unknown]
  - Asthenia [Unknown]
  - Anaemia [Unknown]
  - Blood pressure increased [Unknown]
  - Blood cholesterol increased [Unknown]
  - Mouth haemorrhage [Recovered/Resolved]
  - Psychiatric symptom [Unknown]
  - Cerebral haemorrhage [Recovered/Resolved]
  - Nausea [Unknown]
  - Platelet count decreased [Unknown]
  - Nausea [Recovered/Resolved]
  - Head discomfort [Not Recovered/Not Resolved]
  - Platelet count abnormal [Unknown]
  - Pelvic haemorrhage [Recovered/Resolved]
  - Epistaxis [Recovered/Resolved]
  - Dizziness [Recovered/Resolved]
  - Immune thrombocytopenia [Unknown]
  - Loss of consciousness [Unknown]

NARRATIVE: CASE EVENT DATE: 20200312
